FAERS Safety Report 7912838-4 (Version None)
Quarter: 2011Q4

REPORT INFORMATION
  Report Type: 
  Country: None (occurrence: None)
  Receive Date: 20111114
  Receipt Date: 20111102
  Transmission Date: 20120403
  Serious: Yes (Hospitalization)
  Sender: FDA-Public Use
  Company Number: US-GLAXOSMITHKLINE-B0695150A

PATIENT
  Sex: Female
  Weight: 140 kg

DRUGS (3)
  1. GLYBURIDE [Concomitant]
     Dates: end: 20090218
  2. JANUVIA [Concomitant]
  3. AVANDIA [Suspect]
     Indication: DIABETES MELLITUS
     Route: 048
     Dates: end: 20100726

REACTIONS (3)
  - CARDIAC DISORDER [None]
  - CARDIOMEGALY [None]
  - CARDIAC FAILURE CONGESTIVE [None]
